FAERS Safety Report 8127227-X (Version None)
Quarter: 2012Q1

REPORT INFORMATION
  Report Type: 
  Country: None (occurrence: None)
  Receive Date: 20120210
  Receipt Date: 20120207
  Transmission Date: 20120608
  Serious: Yes (Other)
  Sender: FDA-Public Use
  Company Number: US-PFIZER INC-2012033837

PATIENT
  Sex: Female

DRUGS (5)
  1. PREMPRO [Suspect]
     Route: 048
  2. PREMPRO [Suspect]
     Dosage: 0.3MG/1.5MG, UNK
     Route: 048
  3. METOPROLOL [Concomitant]
     Indication: HYPERTENSION
     Dosage: UNK
  4. PREMPRO [Suspect]
     Indication: HOT FLUSH
     Dosage: UNK, 1X/DAY
     Route: 048
  5. INDAPAMIDE [Concomitant]
     Indication: HYPERTENSION
     Dosage: UNK

REACTIONS (3)
  - MUSCLE DISORDER [None]
  - HOT FLUSH [None]
  - DIABETES MELLITUS [None]
